FAERS Safety Report 8922131 (Version 1)
Quarter: 2012Q4

REPORT INFORMATION
  Report Type: Spontaneous
  Country: US (occurrence: None)
  Receive Date: 20121120
  Receipt Date: 20121120
  Transmission Date: 20130627
  Serious: Yes (Hospitalization)
  Sender: FDA-Public Use
  Company Number: None

PATIENT
  Age: 38 Year
  Sex: Female
  Weight: 84.1 kg

DRUGS (6)
  1. AVONEX 30 MCG BIOGEN [Suspect]
     Indication: RELAPSING-REMITTING MULTIPLE SCLEROSIS
     Dosage: 30 MCG  once a week IM
     Route: 030
     Dates: start: 201208, end: 201211
  2. PREDNISONE [Concomitant]
  3. OMEGA 3 [Concomitant]
  4. VITAMIN B-COMPLEX [Concomitant]
  5. MIRTAZAPINE [Concomitant]
  6. OMEPRAZOLE [Concomitant]

REACTIONS (4)
  - Vomiting [None]
  - Dizziness [None]
  - Balance disorder [None]
  - Heart rate decreased [None]
